FAERS Safety Report 22018140 (Version 2)
Quarter: 2023Q2

REPORT INFORMATION
  Report Type: Spontaneous
  Country: US (occurrence: US)
  Receive Date: 20230221
  Receipt Date: 20230414
  Transmission Date: 20230721
  Serious: No
  Sender: FDA-Public Use
  Company Number: US-BAUSCH-BL-2023-002571

PATIENT
  Age: 56 Year
  Sex: Male

DRUGS (3)
  1. NORITATE [Suspect]
     Active Substance: METRONIDAZOLE
     Indication: Rosacea
     Dosage: 10MG/G
     Route: 061
     Dates: start: 20230207
  2. NORITATE [Suspect]
     Active Substance: METRONIDAZOLE
     Dosage: 10MG/G
     Route: 061
     Dates: start: 202302
  3. SELENIUM SULFIDE [Concomitant]
     Active Substance: SELENIUM SULFIDE
     Indication: Product used for unknown indication

REACTIONS (4)
  - Application site irritation [Unknown]
  - Drug ineffective [Unknown]
  - Product physical consistency issue [Unknown]
  - Product use issue [Unknown]

NARRATIVE: CASE EVENT DATE: 20230201
